FAERS Safety Report 16780474 (Version 1)
Quarter: 2019Q3

REPORT INFORMATION
  Report Type: Spontaneous
  Country: DE (occurrence: DE)
  Receive Date: 20190906
  Receipt Date: 20190906
  Transmission Date: 20191005
  Serious: Yes (Hospitalization)
  Sender: FDA-Public Use
  Company Number: DE-MYLANLABS-2019M1083123

PATIENT
  Age: 54 Year
  Sex: Female

DRUGS (14)
  1. VALDOXAN [Concomitant]
     Active Substance: AGOMELATINE
     Dosage: 50 MILLIGRAM, QD, 1 TAG VORHER ABGESETZT
  2. LITHIUM APOGEPHA [Concomitant]
     Active Substance: LITHIUM CARBONATE
     Dosage: 225 MILLIGRAM, QD
     Dates: start: 20170321
  3. NORTRILEN [Interacting]
     Active Substance: NORTRIPTYLINE
     Dosage: 50 MILLIGRAM, QD
     Dates: start: 20170306, end: 20170309
  4. NORTRILEN [Interacting]
     Active Substance: NORTRIPTYLINE
     Dosage: 100 MILLIGRAM, QD
     Dates: start: 20170316, end: 20170322
  5. MAGNESIUM [Concomitant]
     Active Substance: MAGNESIUM
     Dosage: 150 MILLIGRAM, QD, SEIT AUFAHME
  6. VIGANTOLETTEN [Interacting]
     Active Substance: CHOLECALCIFEROL
     Indication: PRODUCT USED FOR UNKNOWN INDICATION
     Dosage: 20000 INTERNATIONAL UNIT, QD
  7. METOBETA [Interacting]
     Active Substance: METOPROLOL TARTRATE
     Indication: PRODUCT USED FOR UNKNOWN INDICATION
     Dosage: 190 MILLIGRAM, QD,SEIT AUFNAHME
  8. VENLAFAXINE [Suspect]
     Active Substance: VENLAFAXINE HYDROCHLORIDE
     Indication: PRODUCT USED FOR UNKNOWN INDICATION
     Dosage: 75 MILLIGRAM, QD
     Dates: start: 20170310
  9. NORTRILEN [Interacting]
     Active Substance: NORTRIPTYLINE
     Dosage: 75 MILLIGRAM, QD
     Dates: start: 20170310, end: 20170315
  10. NORTRILEN [Interacting]
     Active Substance: NORTRIPTYLINE
     Indication: PRODUCT USED FOR UNKNOWN INDICATION
     Dosage: 25 MILLIGRAM, QD
     Dates: start: 20170302, end: 20170305
  11. AMLODIPINE [Interacting]
     Active Substance: AMLODIPINE BESYLATE
     Indication: PRODUCT USED FOR UNKNOWN INDICATION
     Dosage: 5 MILLIGRAM, QD, SEIT AUFNAHME
  12. NORTRILEN [Interacting]
     Active Substance: NORTRIPTYLINE
     Dosage: 50 MILLIGRAM, QD
     Dates: start: 20170323
  13. SIMVAHEXAL [Interacting]
     Active Substance: SIMVASTATIN
     Indication: PRODUCT USED FOR UNKNOWN INDICATION
     Dosage: 20 MILLIGRAM, QD, SEIT AUFNAHME
  14. PLAVIX [Interacting]
     Active Substance: CLOPIDOGREL BISULFATE
     Indication: PRODUCT USED FOR UNKNOWN INDICATION
     Dosage: 75 MILLIGRAM, QD, SEIT AUFNAHME
     Route: 065

REACTIONS (2)
  - Sleep disorder [Recovered/Resolved]
  - Drug interaction [Unknown]

NARRATIVE: CASE EVENT DATE: 20170322
